FAERS Safety Report 8417926-4 (Version None)
Quarter: 2012Q2

REPORT INFORMATION
  Report Type: 
  Country: None (occurrence: None)
  Receive Date: 20120601
  Receipt Date: 20120601
  Transmission Date: 20120825
  Serious: Yes (Other)
  Sender: FDA-Public Use
  Company Number: None

PATIENT
  Age: 78 Year
  Sex: Male
  Weight: 92.0802 kg

DRUGS (3)
  1. TRICOR [Suspect]
     Indication: BLOOD CHOLESTEROL INCREASED
     Dosage: 1 TABLET DAILY
     Dates: start: 20120425, end: 20120503
  2. WELCHOL [Concomitant]
  3. AVALIDE [Concomitant]

REACTIONS (4)
  - HYPOAESTHESIA [None]
  - DYSPHONIA [None]
  - MALAISE [None]
  - MOTOR DYSFUNCTION [None]
